FAERS Safety Report 8227376-1 (Version None)
Quarter: 2012Q1

REPORT INFORMATION
  Report Type: 
  Country: None (occurrence: None)
  Receive Date: 20120322
  Receipt Date: 20120306
  Transmission Date: 20120608
  Serious: Yes (Hospitalization)
  Sender: FDA-Public Use
  Company Number: CO-AMGEN-COLSP2012015026

PATIENT
  Age: 63 Year
  Sex: Female

DRUGS (4)
  1. TRAMADOL HCL [Concomitant]
     Dosage: UNK
  2. ENBREL [Suspect]
     Indication: RHEUMATOID ARTHRITIS
     Dosage: 50 MG, WEEKLY
  3. LOSARTAN POTASSIUM [Concomitant]
     Dosage: UNK
  4. LYRICA [Concomitant]
     Dosage: UNK

REACTIONS (2)
  - GASTROENTERITIS [None]
  - HYPOKALAEMIA [None]
